FAERS Safety Report 6637094-9 (Version None)
Quarter: 2010Q1

REPORT INFORMATION
  Report Type: 
  Country: None (occurrence: None)
  Receive Date: 20100316
  Receipt Date: 20100305
  Transmission Date: 20100710
  Serious: Yes (Hospitalization)
  Sender: FDA-Public Use
  Company Number: PT-B.I. PHARMACEUTICALS,INC./RIDGEFIELD-2010-DE-01524DE

PATIENT
  Sex: Male
  Weight: 71 kg

DRUGS (1)
  1. DOCETAXEL [Suspect]
     Indication: NON-SMALL CELL LUNG CANCER

REACTIONS (2)
  - MUSCULOSKELETAL PAIN [None]
  - STENT PLACEMENT [None]
